FAERS Safety Report 4463429-1 (Version None)
Quarter: 2004Q3

REPORT INFORMATION
  Report Type: 
  Country: None (occurrence: None)
  Receive Date: 20040928
  Receipt Date: 20040920
  Transmission Date: 20050211
  Serious: Yes (Life-Threatening, Hospitalization)
  Sender: FDA-Public Use
  Company Number: CIP04001711

PATIENT
  Age: 76 Year
  Sex: Female

DRUGS (9)
  1. ACTONEL [Suspect]
     Indication: OSTEOPOROSIS
     Dosage: 35 MG ONCE WEEKLY, ORAL
     Route: 048
     Dates: start: 20020101
  2. PREDNISONE [Concomitant]
  3. DETROL ^SLOW RELEASE^ (TOLTERODINE L-TARTRATE) [Concomitant]
  4. FOLIC ACID [Concomitant]
  5. SYNTHROID (LEVOTHYRXINE SODIUM) [Concomitant]
  6. PEPCID [Concomitant]
  7. BEXTRA [Concomitant]
  8. GLUCOSAMINE (GLUCOSAMINE) [Concomitant]
  9. MULTIVITAMIN [Concomitant]

REACTIONS (1)
  - THROMBOCYTOPENIC PURPURA [None]
